FAERS Safety Report 23495894 (Version 2)
Quarter: 2024Q1

REPORT INFORMATION
  Report Type: Spontaneous
  Country: US (occurrence: US)
  Receive Date: 20240207
  Receipt Date: 20240216
  Transmission Date: 20240409
  Serious: Yes (Other)
  Sender: FDA-Public Use
  Company Number: US-APELLIS PHARMACEUTICALS-APL-2023-003496

PATIENT
  Age: 84 Year
  Sex: Female
  Weight: 72 kg

DRUGS (3)
  1. SYFOVRE [Suspect]
     Active Substance: PEGCETACOPLAN
     Indication: Dry age-related macular degeneration
     Dosage: OD
     Dates: start: 20231108, end: 20231111
  2. SYFOVRE [Suspect]
     Active Substance: PEGCETACOPLAN
     Indication: Neovascular age-related macular degeneration
     Dosage: OS
     Dates: start: 20231108, end: 20231111
  3. MINERALS\VITAMINS [Concomitant]
     Active Substance: MINERALS\VITAMINS
     Indication: Macular degeneration
     Dosage: 2 TABLETS, QD
     Route: 065

REACTIONS (5)
  - Keratorhexis [Unknown]
  - Blindness transient [Unknown]
  - Herpes zoster [Unknown]
  - Corneal abrasion [Unknown]
  - Eye pain [Unknown]

NARRATIVE: CASE EVENT DATE: 20231108
